FAERS Safety Report 8078073-7 (Version None)
Quarter: 2012Q1

REPORT INFORMATION
  Report Type: 
  Country: None (occurrence: None)
  Receive Date: 20120127
  Receipt Date: 20110215
  Transmission Date: 20120608
  Serious: No
  Sender: FDA-Public Use
  Company Number: US-ABBOTT-11P-163-0695687-00

PATIENT
  Age: 76 Year
  Sex: Female

DRUGS (4)
  1. PREMARIN [Concomitant]
     Indication: PRODUCT USED FOR UNKNOWN INDICATION
     Dosage: 0.3MG A DAY
  2. HUMIRA [Suspect]
     Indication: PSORIASIS
     Dates: start: 20101001, end: 20110101
  3. POTASSIUM CHLORIDE [Concomitant]
     Indication: PRODUCT USED FOR UNKNOWN INDICATION
     Dosage: 8 MEQ -BID
  4. SYNTHROID [Concomitant]
     Indication: PRODUCT USED FOR UNKNOWN INDICATION
     Dosage: 100 MCG A DAY

REACTIONS (7)
  - SINUSITIS [None]
  - HEADACHE [None]
  - OCULAR HYPERAEMIA [None]
  - EYE SWELLING [None]
  - LYMPHADENOPATHY [None]
  - DRUG INEFFECTIVE [None]
  - PSORIASIS [None]
